FAERS Safety Report 5125041-0 (Version None)
Quarter: 2006Q4

REPORT INFORMATION
  Report Type: 
  Country: None (occurrence: None)
  Receive Date: 20061010
  Receipt Date: 20061010
  Transmission Date: 20070319
  Serious: Yes (Hospitalization)
  Sender: FDA-Public Use
  Company Number: None

PATIENT
  Age: 73 Year
  Sex: Male

DRUGS (8)
  1. WARFARIN SODIUM [Suspect]
     Indication: ATRIAL FIBRILLATION
     Dosage: 2.5 MG MWF/ 3.75 MG OTHER DAYS
     Dates: start: 20040701
  2. ETODOLAC [Suspect]
     Indication: PAIN
     Dosage: 600 MG BID
     Dates: start: 20040614
  3. TEMAZEPAM [Concomitant]
  4. ORLISTAT [Concomitant]
  5. MORPHINE [Concomitant]
  6. GUAIFENESIN [Concomitant]
  7. VARDENAFIL [Concomitant]
  8. TAMSULOSIN HCL [Concomitant]

REACTIONS (1)
  - INTERNATIONAL NORMALISED RATIO INCREASED [None]
